FAERS Safety Report 11806100 (Version 2)
Quarter: 2015Q4

REPORT INFORMATION
  Report Type: Spontaneous
  Country: IT (occurrence: IT)
  Receive Date: 20151207
  Receipt Date: 20151214
  Transmission Date: 20160305
  Serious: Yes (Other)
  Sender: FDA-Public Use
  Company Number: IT-WATSON-2015-26292

PATIENT
  Sex: Male
  Weight: 90 kg

DRUGS (2)
  1. RISPERIDONE (UNKNOWN) [Suspect]
     Active Substance: RISPERIDONE
     Indication: PSYCHOTIC DISORDER
     Dosage: 2 MG, DAILY
     Route: 048
  2. TAVOR [Concomitant]
     Active Substance: LORAZEPAM
     Indication: ANXIETY
     Dosage: 2.5 MG, UNK
     Route: 048

REACTIONS (5)
  - Salivary hypersecretion [Recovered/Resolved]
  - Psychotic disorder [Recovered/Resolved]
  - Drug ineffective [Recovered/Resolved]
  - Muscle rigidity [Recovered/Resolved]
  - Extrapyramidal disorder [Recovered/Resolved]
